FAERS Safety Report 7422617-2 (Version None)
Quarter: 2011Q2

REPORT INFORMATION
  Report Type: 
  Country: None (occurrence: None)
  Receive Date: 20110407
  Receipt Date: 20110330
  Transmission Date: 20111010
  Serious: Yes (Hospitalization)
  Sender: FDA-Public Use
  Company Number: UTC-006019

PATIENT
  Age: 39 Year
  Sex: Female

DRUGS (2)
  1. TYVASO [Suspect]
     Dosage: INHALATION
  2. ADCIRCA [Concomitant]

REACTIONS (2)
  - CONDITION AGGRAVATED [None]
  - CHEST PAIN [None]
